FAERS Safety Report 21639336 (Version 1)
Quarter: 2022Q4

REPORT INFORMATION
  Report Type: Report from Study
  Country: GB (occurrence: GB)
  Receive Date: 20221124
  Receipt Date: 20221124
  Transmission Date: 20230113
  Serious: Yes (Other)
  Sender: FDA-Public Use
  Company Number: GB-TEVA-2022-GB-2828018

PATIENT
  Age: 33 Year
  Sex: Female

DRUGS (1)
  1. AJOVY [Suspect]
     Active Substance: FREMANEZUMAB-VFRM
     Indication: Product used for unknown indication
     Dates: start: 20221103

REACTIONS (3)
  - Throat tightness [Unknown]
  - Chest discomfort [Unknown]
  - Immediate post-injection reaction [Unknown]

NARRATIVE: CASE EVENT DATE: 20221103
